FAERS Safety Report 17813648 (Version 2)
Quarter: 2020Q3

REPORT INFORMATION
  Report Type: Report from Study
  Country: US (occurrence: US)
  Receive Date: 20200521
  Receipt Date: 20200703
  Transmission Date: 20201102
  Serious: No
  Sender: FDA-Public Use
  Company Number: US-009507513-2005USA006902

PATIENT
  Sex: Female

DRUGS (4)
  1. BELSOMRA [Suspect]
     Active Substance: SUVOREXANT
     Indication: INSOMNIA
     Dosage: 15 MILLIGRAM
     Route: 048
  2. BELSOMRA [Suspect]
     Active Substance: SUVOREXANT
     Dosage: 20 MILLIGRAM
     Route: 048
  3. BELSOMRA [Suspect]
     Active Substance: SUVOREXANT
     Dosage: 10 MILLIGRAM (20 MG PILLS IN HALFUSING A PILL CUTTER)
     Route: 048
  4. BELSOMRA [Suspect]
     Active Substance: SUVOREXANT
     Dosage: 5 MILLIGRAM (20 MG TABLETS IN QUARTERS)
     Route: 048

REACTIONS (6)
  - Confusional state [Not Recovered/Not Resolved]
  - Wrong technique in product usage process [Unknown]
  - Agitation [Not Recovered/Not Resolved]
  - Intentional product misuse [Unknown]
  - Poor quality sleep [Not Recovered/Not Resolved]
  - Feeling abnormal [Not Recovered/Not Resolved]
